FAERS Safety Report 8436169-1 (Version None)
Quarter: 2012Q2

REPORT INFORMATION
  Report Type: 
  Country: None (occurrence: None)
  Receive Date: 20120614
  Receipt Date: 20120613
  Transmission Date: 20120825
  Serious: Yes (Other)
  Sender: FDA-Public Use
  Company Number: JP-PFIZER INC-2012135313

PATIENT
  Age: 87 Year
  Sex: Female

DRUGS (5)
  1. CELEBREX [Suspect]
     Dosage: 100 MG, UNK
     Route: 048
  2. PREDNISOLONE [Concomitant]
     Dosage: UNK
  3. BASEN [Concomitant]
     Dosage: UNK
  4. CELEBREX [Suspect]
     Dosage: 200 MG DAILY
     Route: 048
  5. FAMOTIDINE [Concomitant]
     Dosage: UNK

REACTIONS (1)
  - HAEMORRHAGE [None]
